FAERS Safety Report 9704614 (Version 1)
Quarter: 2013Q4

REPORT INFORMATION
  Report Type: Spontaneous
  Country: US (occurrence: None)
  Receive Date: 20131121
  Receipt Date: 20131121
  Transmission Date: 20140711
  Serious: No
  Sender: FDA-Public Use
  Company Number: None

PATIENT
  Age: 75 None
  Sex: Female

DRUGS (10)
  1. AUGMENTIN [Suspect]
     Indication: PROPHYLAXIS
     Dates: start: 20120717, end: 20120727
  2. AUGMENTIN [Suspect]
     Indication: DERMATITIS
     Dates: start: 20120717, end: 20120727
  3. PREDINSONE [Concomitant]
  4. HYDROCORTISONE CREAM [Concomitant]
  5. TRIAMCINOLONE CREAM [Concomitant]
  6. NYSTATIN POWDER [Concomitant]
  7. ALEVE 9PRN) [Concomitant]
  8. ASPIRIN [Concomitant]
  9. LIPITOR [Concomitant]
  10. SYNTHROID [Concomitant]

REACTIONS (4)
  - Drug-induced liver injury [None]
  - Jaundice [None]
  - Pruritus [None]
  - Hepatic steatosis [None]
